FAERS Safety Report 10307992 (Version 28)
Quarter: 2015Q4

REPORT INFORMATION
  Report Type: Report from Study
  Country: CA (occurrence: CA)
  Receive Date: 20140716
  Receipt Date: 20151002
  Transmission Date: 20160304
  Serious: Yes (Hospitalization, Other)
  Sender: FDA-Public Use
  Company Number: PHHY2012CA082496

PATIENT
  Age: 59 Year
  Sex: Female
  Weight: 66 kg

DRUGS (6)
  1. PREDNISONE. [Suspect]
     Active Substance: PREDNISONE
     Dosage: 50 MG, QD (FOR 4 WEEKS AFTER SHE WOULD TAPER DOWN)
     Route: 065
  2. SANDOSTATIN LAR DEPOT [Suspect]
     Active Substance: OCTREOTIDE ACETATE
     Dosage: 30 MG, QMO
     Route: 030
     Dates: end: 20150825
  3. PREDNISONE. [Suspect]
     Active Substance: PREDNISONE
     Dosage: 50 MG, BEING TAPERED OFF
     Route: 065
  4. SANDOSTATIN LAR DEPOT [Suspect]
     Active Substance: OCTREOTIDE ACETATE
     Indication: PANCREATITIS CHRONIC
     Dosage: 20 MG, QMO
     Route: 030
     Dates: start: 1996
  5. PREDNISONE. [Suspect]
     Active Substance: PREDNISONE
     Dosage: 60 MG
     Route: 065
  6. PREDNISONE. [Suspect]
     Active Substance: PREDNISONE
     Indication: PRODUCT USED FOR UNKNOWN INDICATION
     Dosage: 60 MG, QD
     Route: 065

REACTIONS (32)
  - Pneumonia [Unknown]
  - Tachycardia [Unknown]
  - Spinal column injury [Unknown]
  - Pain [Unknown]
  - Blood pressure systolic increased [Unknown]
  - Malaise [Unknown]
  - Confusional state [Unknown]
  - Weight decreased [Unknown]
  - Foot fracture [Unknown]
  - Abdominal pain upper [Not Recovered/Not Resolved]
  - Urinary tract infection [Unknown]
  - Dyspnoea [Unknown]
  - Femur fracture [Unknown]
  - Heart rate decreased [Unknown]
  - Hypoxia [Unknown]
  - Blood pressure diastolic decreased [Unknown]
  - Balance disorder [Unknown]
  - Oropharyngeal pain [Unknown]
  - Fall [Unknown]
  - Abdominal pain [Unknown]
  - Asthenia [Unknown]
  - Skin ulcer [Recovering/Resolving]
  - Pulmonary mass [Unknown]
  - Body temperature increased [Unknown]
  - Vasculitis [Unknown]
  - Concomitant disease aggravated [Not Recovered/Not Resolved]
  - Lung infection [Unknown]
  - Diarrhoea [Unknown]
  - Off label use [Unknown]
  - Infected skin ulcer [Recovering/Resolving]
  - Upper limb fracture [Unknown]
  - Osteoporosis [Unknown]

NARRATIVE: CASE EVENT DATE: 20120914
